FAERS Safety Report 9911466 (Version 1)
Quarter: 2014Q1

REPORT INFORMATION
  Report Type: Spontaneous
  Country: PL (occurrence: PL)
  Receive Date: 20140219
  Receipt Date: 20140219
  Transmission Date: 20141002
  Serious: Yes (Hospitalization)
  Sender: FDA-Public Use
  Company Number: PHHY2014PL019527

PATIENT
  Age: 40 Year
  Sex: Male
  Weight: 101 kg

DRUGS (1)
  1. CICLOSPORIN [Suspect]
     Indication: MYOCARDITIS INFECTIOUS
     Dosage: 300 MG, UNK
     Route: 048
     Dates: start: 20121205, end: 20121216

REACTIONS (1)
  - Atrial pressure increased [Recovered/Resolved]
